FAERS Safety Report 17268456 (Version 2)
Quarter: 2020Q3

REPORT INFORMATION
  Report Type: Spontaneous
  Country: US (occurrence: US)
  Receive Date: 20200114
  Receipt Date: 20200815
  Transmission Date: 20201102
  Serious: Yes (Other)
  Sender: FDA-Public Use
  Company Number: US-TEVA-2020-US-1166162

PATIENT
  Sex: Female

DRUGS (8)
  1. ROSUVASTATIN. [Concomitant]
     Active Substance: ROSUVASTATIN
  2. VITAMIN B12 [Concomitant]
     Active Substance: CYANOCOBALAMIN
     Route: 065
  3. VAGIFEM [Concomitant]
     Active Substance: ESTRADIOL
     Route: 065
  4. ESTRADIOL TEVA [Suspect]
     Active Substance: ESTRADIOL
     Route: 067
     Dates: end: 201912
  5. LOSARTAN. [Concomitant]
     Active Substance: LOSARTAN
     Route: 065
  6. PENTOSA [Concomitant]
     Active Substance: PANTOPRAZOLE SODIUM
     Route: 065
  7. COQ 10 [Concomitant]
     Active Substance: UBIDECARENONE
     Route: 065
  8. VITAMIN D [Concomitant]
     Active Substance: VITAMIN D NOS
     Route: 065

REACTIONS (8)
  - Vulvovaginal dryness [Recovered/Resolved]
  - Fungal infection [Recovered/Resolved]
  - Vulvovaginal burning sensation [Recovered/Resolved]
  - Dyspareunia [Recovered/Resolved]
  - Pain [Recovered/Resolved]
  - Adverse event [Not Recovered/Not Resolved]
  - Drug ineffective [Unknown]
  - Urinary tract infection [Recovered/Resolved]

NARRATIVE: CASE EVENT DATE: 202001
